FAERS Safety Report 8970183 (Version 1)
Quarter: 2012Q4

REPORT INFORMATION
  Report Type: 
  Country: US (occurrence: US)
  Receive Date: 20121217
  Receipt Date: 20121217
  Transmission Date: 20130627
  Serious: Yes (Other)
  Sender: FDA-Public Use
  Company Number: US-PFIZER INC-2012318518

PATIENT
  Age: 77 Year
  Sex: Female
  Weight: 79.82 kg

DRUGS (2)
  1. LYRICA [Suspect]
     Indication: PAIN
     Dosage: 75 mg, as needed
     Dates: start: 201211, end: 2012
  2. LYRICA [Suspect]
     Indication: NERVOUS SYSTEM DISORDER
     Dosage: 25 mg, as needed
     Dates: start: 2012

REACTIONS (5)
  - Fluid retention [Unknown]
  - Weight increased [Unknown]
  - Increased appetite [Unknown]
  - Inappropriate schedule of drug administration [Unknown]
  - Drug ineffective [Unknown]
